FAERS Safety Report 8125837-7 (Version None)
Quarter: 2012Q1

REPORT INFORMATION
  Report Type: 
  Country: None (occurrence: None)
  Receive Date: 20120209
  Receipt Date: 20120131
  Transmission Date: 20120608
  Serious: Yes (Hospitalization)
  Sender: FDA-Public Use
  Company Number: IT-ABBOTT-12P-083-0894065-00

PATIENT
  Sex: Male

DRUGS (2)
  1. HUMIRA [Suspect]
     Indication: CROHN'S DISEASE
     Dosage: CYCLIC
     Route: 058
     Dates: start: 20110124, end: 20110727
  2. REMICADE [Suspect]
     Indication: CROHN'S DISEASE
     Route: 042
     Dates: start: 20100417, end: 20110117

REACTIONS (12)
  - LYMPHOPENIA [None]
  - ASTHENIA [None]
  - LEUKOPENIA [None]
  - FLUSHING [None]
  - VOMITING [None]
  - CROHN'S DISEASE [None]
  - POLYARTHRITIS [None]
  - BRONCHOPNEUMONIA [None]
  - ILEAL STENOSIS [None]
  - MEDULLOBLASTOMA [None]
  - DYSPNOEA [None]
  - LARGE INTESTINAL ULCER [None]
